FAERS Safety Report 13043699 (Version 1)
Quarter: 2016Q4

REPORT INFORMATION
  Report Type: Spontaneous
  Country: US (occurrence: US)
  Receive Date: 20161219
  Receipt Date: 20161219
  Transmission Date: 20170207
  Serious: Yes (Hospitalization)
  Sender: FDA-Public Use
  Company Number: None

PATIENT
  Age: 47 Year
  Sex: Male
  Weight: 129.5 kg

DRUGS (2)
  1. CEFEPIME [Suspect]
     Active Substance: CEFEPIME HYDROCHLORIDE
     Indication: OSTEOMYELITIS
     Route: 058
     Dates: start: 20161109, end: 20161128
  2. VANCOMYCIN [Suspect]
     Active Substance: VANCOMYCIN
     Indication: OSTEOMYELITIS
     Route: 058
     Dates: start: 20161103, end: 20161128

REACTIONS (11)
  - Rash [None]
  - Dyspnoea [None]
  - Erythema multiforme [None]
  - Pyrexia [None]
  - Skin exfoliation [None]
  - Liver function test increased [None]
  - Urticaria [None]
  - Blood urea increased [None]
  - Eosinophilia [None]
  - Pruritus [None]
  - Blood creatine increased [None]

NARRATIVE: CASE EVENT DATE: 20161128
